FAERS Safety Report 7530152-6 (Version None)
Quarter: 2011Q2

REPORT INFORMATION
  Report Type: 
  Country: None (occurrence: None)
  Receive Date: 20110526
  Receipt Date: 20110520
  Transmission Date: 20111010
  Serious: Yes (Hospitalization, Disabling)
  Sender: FDA-Public Use
  Company Number: 2010SP055002

PATIENT
  Age: 23 Year
  Sex: Female
  Weight: 117.9352 kg

DRUGS (2)
  1. NUVARING [Suspect]
     Indication: CONTRACEPTION
     Dates: start: 20091126, end: 20100301
  2. NUVARING [Suspect]
     Indication: MENSTRUAL DISORDER
     Dates: start: 20091126, end: 20100301

REACTIONS (33)
  - OVARIAN CYST [None]
  - VARICOSE VEIN [None]
  - CONSTIPATION [None]
  - GASTROOESOPHAGEAL REFLUX DISEASE [None]
  - SCOLIOSIS [None]
  - ATELECTASIS [None]
  - PELVIC INFLAMMATORY DISEASE [None]
  - DEHYDRATION [None]
  - PYELONEPHRITIS [None]
  - HYPERTHYROIDISM [None]
  - HEADACHE [None]
  - OEDEMA PERIPHERAL [None]
  - ALVEOLITIS ALLERGIC [None]
  - MIGRAINE [None]
  - NAUSEA [None]
  - EYE SWELLING [None]
  - PLEURAL EFFUSION [None]
  - PULMONARY INFARCTION [None]
  - PULMONARY EMBOLISM [None]
  - TOOTHACHE [None]
  - LOWER GASTROINTESTINAL HAEMORRHAGE [None]
  - VICTIM OF ABUSE [None]
  - GROIN PAIN [None]
  - THROMBOSIS [None]
  - OVARIAN CYST RUPTURED [None]
  - DIVERTICULUM [None]
  - DEPRESSION [None]
  - VOMITING [None]
  - DIARRHOEA [None]
  - COAGULOPATHY [None]
  - BRONCHITIS [None]
  - MUSCULOSKELETAL CHEST PAIN [None]
  - LUNG INFILTRATION [None]
